FAERS Safety Report 22520893 (Version 1)
Quarter: 2023Q2

REPORT INFORMATION
  Report Type: Spontaneous
  Country: US (occurrence: None)
  Receive Date: 20230602
  Receipt Date: 20230602
  Transmission Date: 20230721
  Serious: Yes (Hospitalization)
  Sender: FDA-Public Use
  Company Number: None

PATIENT
  Sex: Male

DRUGS (13)
  1. MERCAPTOPURINE [Suspect]
     Active Substance: MERCAPTOPURINE
     Indication: Acute lymphocytic leukaemia
     Dosage: FREQUENCY : 3 TIMES A DAY;?
     Route: 048
  2. ACYCLOVR [Concomitant]
  3. OXYCODONE [Concomitant]
     Active Substance: OXYCODONE
  4. PANTOPRAZOLE [Concomitant]
     Active Substance: PANTOPRAZOLE
  5. PROCHLORPERAZINE [Concomitant]
     Active Substance: PROCHLORPERAZINE
  6. SENNOSIDES [Concomitant]
     Active Substance: SENNOSIDES
  7. XARELTO [Concomitant]
     Active Substance: RIVAROXABAN
  8. ALLOPURINOL [Concomitant]
     Active Substance: ALLOPURINOL
  9. HEPARIN [Concomitant]
     Active Substance: HEPARIN SODIUM
  10. LORAZEPAM [Concomitant]
     Active Substance: LORAZEPAM
  11. PREDNISONE [Concomitant]
     Active Substance: PREDNISONE
  12. DEZAMETHASONE [Concomitant]
  13. BACTRIM [Concomitant]
     Active Substance: SULFAMETHOXAZOLE\TRIMETHOPRIM

REACTIONS (1)
  - Hospitalisation [None]
